FAERS Safety Report 8460493-X (Version None)
Quarter: 2012Q2

REPORT INFORMATION
  Report Type: 
  Country: None (occurrence: None)
  Receive Date: 20120622
  Receipt Date: 20120614
  Transmission Date: 20120825
  Serious: Yes (Hospitalization, Other)
  Sender: FDA-Public Use
  Company Number: CA-CELGENEUS-028-21880-12062117

PATIENT
  Sex: Male
  Weight: 99.5 kg

DRUGS (21)
  1. REVLIMID [Suspect]
     Dosage: 25 MILLIGRAM
     Route: 048
     Dates: start: 20120223, end: 20120509
  2. DEXAMETHASONE [Suspect]
     Dosage: 40 MILLIGRAM
     Route: 065
     Dates: start: 20120223, end: 20120510
  3. COLACE [Concomitant]
     Indication: CONSTIPATION
     Dosage: 100 MILLIGRAM
     Route: 048
     Dates: start: 20091127
  4. LASIX [Concomitant]
     Dosage: 20 MILLIGRAM
     Route: 048
     Dates: start: 20100101
  5. OMEPRAZOLE (PRISOLEC) [Concomitant]
     Dosage: 20 MILLIGRAM
     Route: 048
     Dates: start: 20090917
  6. EPREX [Concomitant]
     Dosage: 40000 IU (INTERNATIONAL UNIT)
     Route: 058
     Dates: start: 20111226
  7. REPLAVITIVE [Concomitant]
     Indication: SUPPLEMENTATION THERAPY
     Dosage: 1 TABLET
     Route: 048
     Dates: start: 20090917
  8. WARFARIN SODIUM [Concomitant]
     Indication: ATRIAL FIBRILLATION
     Dosage: 5 MILLIGRAM
     Route: 048
     Dates: start: 20111102
  9. DEXAMETHASONE [Suspect]
     Indication: MULTIPLE MYELOMA
     Dosage: 40 MILLIGRAM
     Route: 065
     Dates: start: 20110714, end: 20111027
  10. PAMIDRONATE DISODIUM [Concomitant]
     Indication: OSTEOPENIA
     Dosage: 1 TABLET
     Route: 041
     Dates: start: 20091127
  11. SENOKOT [Concomitant]
     Indication: CONSTIPATION
     Dosage: 1-2 TABLET
     Route: 048
     Dates: start: 20091117
  12. TYLENOL ARTHRITIS [Concomitant]
     Dosage: 650 MILLIGRAM
     Route: 048
     Dates: start: 20091127
  13. REVLIMID [Suspect]
     Dosage: 25 MILLIGRAM
     Route: 048
     Dates: start: 20111201, end: 20120210
  14. SULFATRIM-DS [Concomitant]
     Indication: ANTI-INFECTIVE THERAPY
     Dosage: 1 TABLET
     Route: 048
     Dates: start: 20091001
  15. REVLIMID [Suspect]
     Indication: MULTIPLE MYELOMA
     Dosage: 25 MILLIGRAM
     Route: 048
     Dates: start: 20110616, end: 20111025
  16. LOPRESSOR [Concomitant]
     Indication: HYPERTENSION
     Dosage: 50 MILLIGRAM
     Route: 048
     Dates: start: 20100217
  17. PLAVIX [Concomitant]
     Dosage: 75 MILLIGRAM
     Route: 048
     Dates: start: 20041201
  18. DEXAMETHASONE [Suspect]
     Dosage: 40 MILLIGRAM
     Route: 065
     Dates: start: 20111201, end: 20120120
  19. LIPITOR [Concomitant]
     Dosage: 80 MILLIGRAM
     Route: 048
     Dates: start: 20090917
  20. THALIDOMIDE [Suspect]
     Indication: MULTIPLE MYELOMA
     Dosage: UNKN
     Route: 048
     Dates: start: 20090718, end: 20101229
  21. ASPIRIN [Concomitant]
     Dosage: 81 MILLIGRAM
     Route: 048
     Dates: start: 20090917

REACTIONS (2)
  - URINARY RETENTION POSTOPERATIVE [None]
  - BLADDER NEOPLASM [None]
